FAERS Safety Report 24040914 (Version 1)
Quarter: 2024Q3

REPORT INFORMATION
  Report Type: Spontaneous
  Country: US (occurrence: US)
  Receive Date: 20240702
  Receipt Date: 20240702
  Transmission Date: 20241016
  Serious: Yes (Hospitalization, Other)
  Sender: ADMA BIOLOGICS
  Company Number: US-ADMA BIOLOGICS INC.-US-2024ADM000094

PATIENT
  Age: 57 Year
  Sex: Male

DRUGS (1)
  1. HUMAN IMMUNOGLOBULIN G [Suspect]
     Active Substance: HUMAN IMMUNOGLOBULIN G
     Indication: Guillain-Barre syndrome
     Dosage: UNK, UNK
     Route: 042

REACTIONS (5)
  - Bacteraemia [Recovered/Resolved]
  - Endocarditis [Recovered/Resolved]
  - Pleural effusion [Unknown]
  - Pyrexia [Unknown]
  - Off label use [Unknown]
